FAERS Safety Report 8541248-4 (Version None)
Quarter: 2012Q3

REPORT INFORMATION
  Report Type: 
  Country: None (occurrence: None)
  Receive Date: 20120726
  Receipt Date: 20120717
  Transmission Date: 20120928
  Serious: Yes (Hospitalization)
  Sender: FDA-Public Use
  Company Number: US-ELI_LILLY_AND_COMPANY-US201111007536

PATIENT
  Sex: Female

DRUGS (19)
  1. FORTEO [Suspect]
     Dosage: 20 UG, QD
  2. PREDNISONE [Concomitant]
  3. ASPIRIN [Concomitant]
  4. MUCINEX [Concomitant]
  5. ADVAIR DISKUS 100/50 [Concomitant]
  6. MIRALAX [Concomitant]
  7. MS CONTIN [Concomitant]
  8. FORTEO [Suspect]
     Dosage: 20 UG, QD
  9. IRON [Concomitant]
  10. ATIVAN [Concomitant]
  11. PROAIR HFA [Concomitant]
  12. FORTEO [Suspect]
     Indication: OSTEOPOROSIS
     Dosage: 20 UG, QD
     Route: 065
     Dates: start: 20110901
  13. SERTRALINE HYDROCHLORIDE [Concomitant]
  14. CALCIUM [Concomitant]
  15. FLOVENT [Concomitant]
  16. XANAX [Concomitant]
  17. LASIX [Concomitant]
  18. BYSTOLIC [Concomitant]
  19. DUONEB [Concomitant]

REACTIONS (7)
  - INFLUENZA [None]
  - INJECTION SITE PAIN [None]
  - BURNING SENSATION [None]
  - CHRONIC OBSTRUCTIVE PULMONARY DISEASE [None]
  - MALAISE [None]
  - ABDOMINAL DISCOMFORT [None]
  - FATIGUE [None]
